FAERS Safety Report 8837858 (Version 1)
Quarter: 2012Q4

REPORT INFORMATION
  Report Type: 
  Country: CH (occurrence: CH)
  Receive Date: 20121012
  Receipt Date: 20121012
  Transmission Date: 20130627
  Serious: Yes (Other)
  Sender: FDA-Public Use
  Company Number: CH-ROCHE-1144806

PATIENT
  Age: 77 Year
  Sex: Female

DRUGS (7)
  1. LUCENTIS [Suspect]
     Indication: DIABETIC RETINAL OEDEMA
     Route: 050
     Dates: start: 20100126
  2. MARCOUMAR [Concomitant]
  3. TORASEMIDE [Concomitant]
  4. METOPROLOL SUCCINATE [Concomitant]
  5. INSULIN [Concomitant]
  6. FEMARA [Concomitant]
  7. COSAAR [Concomitant]

REACTIONS (1)
  - Carotid artery disease [Recovered/Resolved]
